FAERS Safety Report 10634259 (Version 1)
Quarter: 2014Q4

REPORT INFORMATION
  Report Type: Spontaneous
  Country: US (occurrence: None)
  Receive Date: 20141203
  Receipt Date: 20141203
  Transmission Date: 20150529
  Serious: Yes (Hospitalization)
  Sender: FDA-Public Use
  Company Number: None

PATIENT
  Age: 79 Year
  Sex: Female
  Weight: 61.51 kg

DRUGS (3)
  1. METFORMIN HYDROCHLORIDE. [Suspect]
     Active Substance: METFORMIN HYDROCHLORIDE
  2. TAXOL [Suspect]
     Active Substance: PACLITAXEL
  3. CARBOPLATIN. [Suspect]
     Active Substance: CARBOPLATIN

REACTIONS (5)
  - Asthenia [None]
  - Delirium [None]
  - Confusional state [None]
  - Orthostatic hypotension [None]
  - Pulmonary embolism [None]

NARRATIVE: CASE EVENT DATE: 20141125
